FAERS Safety Report 8001448-9 (Version None)
Quarter: 2011Q4

REPORT INFORMATION
  Report Type: 
  Country: None (occurrence: None)
  Receive Date: 20111222
  Receipt Date: 20111215
  Transmission Date: 20120403
  Serious: Yes (Hospitalization)
  Sender: FDA-Public Use
  Company Number: CA-JNJFOC-20111208030

PATIENT
  Sex: Male
  Weight: 102.06 kg

DRUGS (1)
  1. STELARA [Suspect]
     Indication: PSORIASIS
     Route: 058

REACTIONS (4)
  - RASH [None]
  - SURGERY [None]
  - NEPHROLITHIASIS [None]
  - INAPPROPRIATE SCHEDULE OF DRUG ADMINISTRATION [None]
